FAERS Safety Report 13263451 (Version 2)
Quarter: 2017Q3

REPORT INFORMATION
  Report Type: Spontaneous
  Country: US (occurrence: US)
  Receive Date: 20170223
  Receipt Date: 20170919
  Transmission Date: 20171127
  Serious: No
  Sender: FDA-Public Use
  Company Number: US-BAYER-2017-036237

PATIENT
  Age: 79 Year
  Sex: Male
  Weight: 72.11 kg

DRUGS (7)
  1. SENNOSIDE [Concomitant]
     Active Substance: SENNOSIDES
     Route: 065
  2. HYDRALAZINE [Concomitant]
     Active Substance: HYDRALAZINE HYDROCHLORIDE
  3. CRESTOR [Concomitant]
     Active Substance: ROSUVASTATIN CALCIUM
     Route: 065
  4. LISINOPRIL. [Concomitant]
     Active Substance: LISINOPRIL
     Route: 065
  5. MIRALAX [Suspect]
     Active Substance: POLYETHYLENE GLYCOL 3350
     Indication: GASTROINTESTINAL DISORDER
     Dosage: 1 DOSE PER DAY DOSE
     Route: 048
     Dates: start: 2016, end: 20170221
  6. NITROGLYCERIN. [Concomitant]
     Active Substance: NITROGLYCERIN
  7. BAYER ASPIRIN [Suspect]
     Active Substance: ASPIRIN

REACTIONS (5)
  - Inappropriate prescribing [None]
  - Incorrect drug administration duration [Unknown]
  - Product use issue [None]
  - Extra dose administered [None]
  - Incorrect dosage administered [Unknown]

NARRATIVE: CASE EVENT DATE: 2016
